FAERS Safety Report 9678188 (Version 1)
Quarter: 2013Q4

REPORT INFORMATION
  Report Type: Spontaneous
  Country: US (occurrence: US)
  Receive Date: 20131108
  Receipt Date: 20131108
  Transmission Date: 20140711
  Serious: Yes (Hospitalization, Other)
  Sender: FDA-Public Use
  Company Number: PHHY2013US123575

PATIENT
  Age: 41 Year
  Sex: Male

DRUGS (11)
  1. AMANTADINE [Suspect]
     Dosage: 200 MG,PER DAY
  2. BACLOFEN [Suspect]
     Indication: TARDIVE DYSKINESIA
     Route: 048
  3. CLONAZEPAM [Suspect]
  4. BENZTROPINE [Suspect]
     Dosage: 6 MG, PER DAY
     Route: 030
  5. SERTRALINE [Suspect]
  6. TRAZODONE [Suspect]
  7. DIPHENHYDRAMINE [Suspect]
  8. RISPERIDONE [Suspect]
  9. RESERPINE [Suspect]
  10. TETRABENAZINE [Suspect]
     Dosage: 25 MG, PER DAY
  11. BOTULINUM TOXIN [Suspect]

REACTIONS (22)
  - Tardive dyskinesia [Recovering/Resolving]
  - Sedation [Recovering/Resolving]
  - Disturbance in attention [Recovering/Resolving]
  - Vision blurred [Recovering/Resolving]
  - Dry mouth [Unknown]
  - Oromandibular dystonia [Recovering/Resolving]
  - Dyskinesia [Unknown]
  - Grunting [Recovering/Resolving]
  - Blepharospasm [Recovering/Resolving]
  - Head discomfort [Recovering/Resolving]
  - Torticollis [Unknown]
  - Speech disorder [Recovering/Resolving]
  - Dystonia [Unknown]
  - Constipation [Recovering/Resolving]
  - Condition aggravated [Recovering/Resolving]
  - Urinary hesitation [Recovering/Resolving]
  - Anxiety [Recovering/Resolving]
  - Dysphagia [Recovering/Resolving]
  - Insomnia [Recovering/Resolving]
  - Oral disorder [Unknown]
  - Neck pain [Unknown]
  - Fall [Unknown]
